FAERS Safety Report 6292783-3 (Version None)
Quarter: 2009Q3

REPORT INFORMATION
  Report Type: 
  Country: None (occurrence: None)
  Receive Date: 20090731
  Receipt Date: 20090723
  Transmission Date: 20100115
  Serious: Yes (Other)
  Sender: FDA-Public Use
  Company Number: JP-NOVOPROD-289735

PATIENT
  Age: 51 Year
  Sex: Male

DRUGS (1)
  1. NOVORAPID CHU FLEXPEN [Suspect]
     Indication: TYPE 2 DIABETES MELLITUS
     Dosage: 22-24 IU
     Route: 058

REACTIONS (3)
  - BLOOD GLUCOSE DECREASED [None]
  - DEVICE FAILURE [None]
  - FEELING ABNORMAL [None]
